FAERS Safety Report 8525794-5 (Version None)
Quarter: 2012Q3

REPORT INFORMATION
  Report Type: 
  Country: None (occurrence: None)
  Receive Date: 20120720
  Receipt Date: 20120709
  Transmission Date: 20120928
  Serious: No
  Sender: FDA-Public Use
  Company Number: US-ASTRAZENECA-2012SE47208

PATIENT
  Age: 50 Year
  Sex: Male
  Weight: 95.7 kg

DRUGS (6)
  1. ZYRTEC [Concomitant]
     Route: 048
  2. CALCIUM 600 + D [Concomitant]
     Dosage: 600-200 MG, 1 TABLET DAILY
     Route: 048
  3. MAGNESIUM SULFATE [Concomitant]
  4. VENTOLIN HFA [Concomitant]
     Dosage: 2 PUFFS INHALATION DAILY
     Route: 055
  5. VERAPAMIL [Concomitant]
  6. SYMBICORT [Suspect]
     Dosage: 160/4.5 MCG, TWO PUFFS, TWO TIMES DAILY
     Route: 055

REACTIONS (4)
  - HYPERLIPIDAEMIA [None]
  - PANIC DISORDER [None]
  - DERMATITIS CONTACT [None]
  - ASTHMA [None]
